FAERS Safety Report 23185837 (Version 4)
Quarter: 2024Q2

REPORT INFORMATION
  Report Type: Report from Study
  Country: FR (occurrence: FR)
  Receive Date: 20231115
  Receipt Date: 20240401
  Transmission Date: 20240715
  Serious: Yes (Hospitalization, Other)
  Sender: FDA-Public Use
  Company Number: FR-SA-SAC20230821001461

PATIENT
  Age: 74 Year
  Sex: Male
  Weight: 77 kg

DRUGS (32)
  1. CARFILZOMIB [Suspect]
     Active Substance: CARFILZOMIB
     Indication: Plasma cell myeloma refractory
     Dosage: 20 MILLIGRAM/SQ. METER, QWK
     Route: 065
     Dates: start: 20230719, end: 20230719
  2. CARFILZOMIB [Suspect]
     Active Substance: CARFILZOMIB
     Dosage: 70 MILLIGRAM/SQ. METER, QWK
     Route: 065
     Dates: start: 20230811, end: 20230811
  3. CARFILZOMIB [Suspect]
     Active Substance: CARFILZOMIB
     Dosage: 70 MILLIGRAM/SQ. METER, QWK
     Route: 065
     Dates: start: 20230818, end: 20230901
  4. CARFILZOMIB [Suspect]
     Active Substance: CARFILZOMIB
     Dosage: 70 MILLIGRAM/SQ. METER, QWK
     Route: 065
     Dates: start: 20230915, end: 20230929
  5. CARFILZOMIB [Suspect]
     Active Substance: CARFILZOMIB
     Dosage: 70 MILLIGRAM/SQ. METER, QWK
     Route: 065
     Dates: start: 20231023, end: 20231106
  6. ISATUXIMAB [Suspect]
     Active Substance: ISATUXIMAB
     Indication: Plasma cell myeloma refractory
     Dosage: 20 MILLIGRAM/KILOGRAM, QWK (10 MG/KG, BIW)
     Route: 065
     Dates: start: 20230818, end: 20230901
  7. ISATUXIMAB [Suspect]
     Active Substance: ISATUXIMAB
     Dosage: 10 MILLIGRAM/KILOGRAM, QWK
     Route: 065
     Dates: start: 20230811, end: 20230811
  8. ISATUXIMAB [Suspect]
     Active Substance: ISATUXIMAB
     Dosage: 10 MILLIGRAM/KILOGRAM, QWK
     Route: 065
     Dates: start: 20230719, end: 20230719
  9. ISATUXIMAB [Suspect]
     Active Substance: ISATUXIMAB
     Dosage: 20 MILLIGRAM/KILOGRAM, QWK
     Route: 065
     Dates: start: 20230915, end: 20230929
  10. ISATUXIMAB [Suspect]
     Active Substance: ISATUXIMAB
     Dosage: 20 MILLIGRAM/KILOGRAM, QWK
     Route: 065
     Dates: start: 20231023, end: 20231106
  11. DEXAMETHASONE [Suspect]
     Active Substance: DEXAMETHASONE
     Indication: Plasma cell myeloma
     Dosage: 40 MILLIGRAM, QWK
     Route: 065
     Dates: start: 20230719, end: 20230719
  12. DEXAMETHASONE [Suspect]
     Active Substance: DEXAMETHASONE
     Dosage: 40 MILLIGRAM, QWK
     Route: 065
     Dates: start: 20230811, end: 20230811
  13. DEXAMETHASONE [Suspect]
     Active Substance: DEXAMETHASONE
     Dosage: 40 MILLIGRAM, QWK
     Route: 065
     Dates: start: 20230818, end: 20230908
  14. DEXAMETHASONE [Suspect]
     Active Substance: DEXAMETHASONE
     Dosage: 40 MILLIGRAM, QWK
     Route: 065
     Dates: start: 20230915, end: 20231006
  15. DEXAMETHASONE [Suspect]
     Active Substance: DEXAMETHASONE
     Dosage: 40 MILLIGRAM, QWK
     Route: 065
     Dates: start: 20231023, end: 20231113
  16. OXACILLIN SODIUM [Concomitant]
     Active Substance: OXACILLIN SODIUM
     Indication: Endocarditis
     Dosage: UNK
     Route: 065
     Dates: start: 20230706, end: 20230721
  17. OXACILLIN SODIUM [Concomitant]
     Active Substance: OXACILLIN SODIUM
     Dosage: UNK
     Route: 065
     Dates: start: 20230729, end: 20230810
  18. LANSOPRAZOLE [Concomitant]
     Active Substance: LANSOPRAZOLE
     Indication: Gastrooesophageal reflux disease
     Dosage: UNK
     Route: 065
  19. ALFUZOSIN [Concomitant]
     Active Substance: ALFUZOSIN
     Indication: Prostatism
     Dosage: UNK
     Route: 065
  20. ZOPICLONE [Concomitant]
     Active Substance: ZOPICLONE
     Indication: Insomnia
     Dosage: UNK
     Route: 065
     Dates: start: 20230706
  21. POTASSIUM CHLORIDE [Concomitant]
     Active Substance: POTASSIUM CHLORIDE
     Dosage: UNK
     Route: 065
     Dates: start: 20230706
  22. FILGRASTIM [Concomitant]
     Active Substance: FILGRASTIM
     Indication: Neutropenia
     Dosage: UNK
     Route: 065
     Dates: start: 20230719, end: 20230802
  23. FOLIC ACID [Concomitant]
     Active Substance: FOLIC ACID
     Indication: Vitamin B complex deficiency
     Dosage: UNK
     Route: 065
     Dates: start: 20230701
  24. BACTRIM [Concomitant]
     Active Substance: SULFAMETHOXAZOLE\TRIMETHOPRIM
     Indication: Prophylaxis
     Dosage: UNK
     Route: 065
     Dates: start: 20200826
  25. FAMOTIDINE [Concomitant]
     Active Substance: FAMOTIDINE
     Indication: Premedication
     Dosage: UNK
     Route: 065
     Dates: start: 20230719
  26. ACETAMINOPHEN [Concomitant]
     Active Substance: ACETAMINOPHEN
     Indication: Premedication
     Dosage: UNK
     Route: 065
     Dates: start: 20230719
  27. APIXABAN [Concomitant]
     Active Substance: APIXABAN
     Indication: Pulmonary embolism
     Dosage: UNK
     Route: 065
     Dates: start: 20230703
  28. VALACYCLOVIR HYDROCHLORIDE [Concomitant]
     Active Substance: VALACYCLOVIR HYDROCHLORIDE
     Indication: Prophylaxis
     Dosage: UNK
     Route: 065
     Dates: start: 20190807
  29. POLARAMINE [Concomitant]
     Active Substance: DEXCHLORPHENIRAMINE MALEATE
     Indication: Premedication
     Dosage: UNK
     Route: 065
     Dates: start: 20230719
  30. HIZENTRA [Concomitant]
     Active Substance: HUMAN IMMUNOGLOBULIN G
     Indication: Prophylaxis
     Dosage: UNK
     Route: 065
     Dates: start: 20230920
  31. CYANOCOBALAMIN [Concomitant]
     Active Substance: CYANOCOBALAMIN
     Indication: Vitamin B complex deficiency
     Dosage: UNK
     Route: 065
     Dates: start: 20230905, end: 20231005
  32. HERBALS\SAW PALMETTO [Concomitant]
     Active Substance: HERBALS\SAW PALMETTO
     Indication: Prostatism
     Dosage: UNK
     Route: 065
     Dates: start: 20230706

REACTIONS (15)
  - Clostridium colitis [Recovered/Resolved]
  - Escherichia bacteraemia [Recovered/Resolved]
  - Lymphopenia [Recovered/Resolved]
  - Pneumonia [Recovered/Resolved]
  - Neutropenia [Recovered/Resolved]
  - Neutropenia [Recovered/Resolved]
  - Neutropenia [Recovered/Resolved]
  - Thrombocytopenia [Recovered/Resolved]
  - Benign prostatic hyperplasia [Recovered/Resolved]
  - Ear pain [Recovered/Resolved]
  - Lymphopenia [Recovered/Resolved]
  - Anaemia [Recovered/Resolved]
  - Anaemia [Not Recovered/Not Resolved]
  - Depression [Not Recovered/Not Resolved]
  - Epistaxis [Recovered/Resolved]

NARRATIVE: CASE EVENT DATE: 20230720
